FAERS Safety Report 23250751 (Version 1)
Quarter: 2023Q4

REPORT INFORMATION
  Report Type: Spontaneous
  Country: CN (occurrence: CN)
  Receive Date: 20231201
  Receipt Date: 20231201
  Transmission Date: 20240109
  Serious: Yes (Other)
  Sender: FDA-Public Use
  Company Number: CN-002147023-NVSC2023CN251586

PATIENT
  Age: 28 Year
  Sex: Male

DRUGS (3)
  1. CERITINIB [Suspect]
     Active Substance: CERITINIB
     Indication: Inflammatory myofibroblastic tumour
     Dosage: UNK
     Route: 065
  2. CRIZOTINIB [Suspect]
     Active Substance: CRIZOTINIB
     Indication: Inflammatory myofibroblastic tumour
     Dosage: UNK
     Route: 065
  3. LORLATINIB [Suspect]
     Active Substance: LORLATINIB
     Indication: Inflammatory myofibroblastic tumour
     Dosage: UNK
     Route: 065

REACTIONS (4)
  - Inflammatory myofibroblastic tumour [Unknown]
  - Malignant neoplasm progression [Unknown]
  - Therapy partial responder [Unknown]
  - Product use in unapproved indication [Unknown]
